FAERS Safety Report 16284171 (Version 1)
Quarter: 2019Q2

REPORT INFORMATION
  Report Type: Spontaneous
  Country: US (occurrence: US)
  Receive Date: 20190507
  Receipt Date: 20190507
  Transmission Date: 20190711
  Serious: No
  Sender: FDA-Public Use
  Company Number: US-VIFOR (INTERNATIONAL) INC.-VIT-2019-03905

PATIENT
  Sex: Male

DRUGS (2)
  1. IRON [Concomitant]
     Active Substance: IRON
  2. VELTASSA [Suspect]
     Active Substance: PATIROMER
     Indication: HYPERKALAEMIA
     Route: 048
     Dates: start: 201808

REACTIONS (3)
  - Asthenia [Unknown]
  - Anaemia [Unknown]
  - Fatigue [Unknown]
